FAERS Safety Report 9863335 (Version 2)
Quarter: 2015Q4

REPORT INFORMATION
  Report Type: Spontaneous
  Country: US (occurrence: US)
  Receive Date: 20140203
  Receipt Date: 20151006
  Transmission Date: 20160305
  Serious: No
  Sender: FDA-Public Use
  Company Number: US-PFIZER INC-2014026149

PATIENT
  Age: 68 Year
  Sex: Female

DRUGS (14)
  1. SOLU-MEDROL [Suspect]
     Active Substance: METHYLPREDNISOLONE SODIUM SUCCINATE
     Dosage: UNK
  2. DEPO-MEDROL [Suspect]
     Active Substance: METHYLPREDNISOLONE ACETATE
     Dosage: UNK
  3. TORADOL [Suspect]
     Active Substance: KETOROLAC TROMETHAMINE
     Dosage: UNK
  4. ZYRTEC [Suspect]
     Active Substance: CETIRIZINE HYDROCHLORIDE
     Dosage: UNK
  5. BEXTRA [Suspect]
     Active Substance: VALDECOXIB
     Dosage: UNK
  6. CELEBREX [Suspect]
     Active Substance: CELECOXIB
     Dosage: UNK
  7. METHOTREXATE SODIUM. [Suspect]
     Active Substance: METHOTREXATE SODIUM
     Dosage: UNK
  8. ARAVA [Suspect]
     Active Substance: LEFLUNOMIDE
     Dosage: UNK
  9. BIAXIN [Suspect]
     Active Substance: CLARITHROMYCIN
     Dosage: UNK
  10. ZORVOLEX [Suspect]
     Active Substance: DICLOFENAC
     Dosage: UNK
  11. PLAQUENIL [Suspect]
     Active Substance: HYDROXYCHLOROQUINE SULFATE
     Dosage: UNK
  12. TRAMADOL. [Suspect]
     Active Substance: TRAMADOL
     Dosage: UNK
  13. VIOXX [Suspect]
     Active Substance: ROFECOXIB
     Dosage: UNK
  14. PREDNISONE. [Suspect]
     Active Substance: PREDNISONE
     Dosage: UNK

REACTIONS (1)
  - Drug hypersensitivity [Unknown]

NARRATIVE: CASE EVENT DATE: 20130424
